FAERS Safety Report 9825107 (Version 1)
Quarter: 2013Q4

REPORT INFORMATION
  Report Type: Spontaneous
  Country: US (occurrence: None)
  Receive Date: 20131028
  Receipt Date: 20131028
  Transmission Date: 20140711
  Serious: Yes (Other)
  Sender: FDA-Public Use
  Company Number: 2013US001106

PATIENT
  Age: 52 Year
  Sex: Male
  Weight: 81.6 kg

DRUGS (7)
  1. ICLUSIG (PONATINIB) TABLET, 45MG [Suspect]
     Indication: ACUTE LYMPHOCYTIC LEUKAEMIA
     Dosage: 45 MG, QD, ORAL
     Route: 048
     Dates: start: 20130122
  2. CRESTOR (ROSUVASTATIN CALCIUM) [Concomitant]
  3. NOVOLOG (INSULIN ASPART) [Concomitant]
  4. LANTUS (INSULIN GLARGINE) [Concomitant]
  5. ASPIRIN (ACETYLSALICYLIC ACID) [Concomitant]
  6. CALCIUM (CALCIUM) [Concomitant]
  7. MULTIVITAMIN (VITAMINS NOS) [Concomitant]

REACTIONS (4)
  - Somnolence [None]
  - Psoriasis [None]
  - Skin exfoliation [None]
  - Dry skin [None]
